FAERS Safety Report 5842386-7 (Version None)
Quarter: 2008Q3

REPORT INFORMATION
  Report Type: 
  Country: None (occurrence: None)
  Receive Date: 20080812
  Receipt Date: 20080805
  Transmission Date: 20090109
  Serious: Yes (Hospitalization)
  Sender: FDA-Public Use
  Company Number: AU-BOEHRINGER INGELHEIM GMBH, GERMANY-2008-BP-11913AU

PATIENT
  Sex: Male

DRUGS (3)
  1. MOBIC [Suspect]
     Indication: OSTEOARTHRITIS
     Route: 048
     Dates: start: 20041018, end: 20061201
  2. MOBIC [Suspect]
     Indication: GOUT
  3. COLCHICINE [Concomitant]
     Indication: GOUT
     Route: 048

REACTIONS (4)
  - ASTHENIA [None]
  - HAEMORRHAGE [None]
  - KORSAKOFF'S PSYCHOSIS NON-ALCOHOLIC [None]
  - UPPER GASTROINTESTINAL HAEMORRHAGE [None]
